FAERS Safety Report 5827356-7 (Version None)
Quarter: 2008Q3

REPORT INFORMATION
  Report Type: 
  Country: None (occurrence: None)
  Receive Date: 20080730
  Receipt Date: 20080725
  Transmission Date: 20090109
  Serious: Yes (Death, Hospitalization)
  Sender: FDA-Public Use
  Company Number: JP-BRISTOL-MYERS SQUIBB COMPANY-14278832

PATIENT
  Age: 77 Year
  Sex: Male

DRUGS (4)
  1. PARAPLATIN [Suspect]
     Indication: PROSTATE CANCER
     Route: 041
  2. BRIPLATIN [Suspect]
     Indication: PROSTATE CANCER
     Route: 013
  3. ETOPOSIDE [Suspect]
     Indication: PROSTATE CANCER
  4. IRINOTECAN HCL [Suspect]
     Indication: PROSTATE CANCER
     Route: 041

REACTIONS (4)
  - DEATH [None]
  - DIARRHOEA [None]
  - MALIGNANT NEOPLASM PROGRESSION [None]
  - PANCYTOPENIA [None]
